FAERS Safety Report 4725835-7 (Version None)
Quarter: 2005Q3

REPORT INFORMATION
  Report Type: 
  Country: None (occurrence: None)
  Receive Date: 20050722
  Receipt Date: 20050722
  Transmission Date: 20060218
  Serious: Yes (Disabling)
  Sender: FDA-Public Use
  Company Number: None

PATIENT
  Age: 82 Year
  Sex: Female
  Weight: 78.0187 kg

DRUGS (7)
  1. CRESTOR [Suspect]
     Indication: BLOOD CHOLESTEROL
     Dosage: 10 MG - REDUCED TO 5 (DAILY) THEN DISCONTINUED
     Dates: start: 20040301, end: 20041101
  2. ARIMIDEX [Concomitant]
  3. ATENOLOL [Concomitant]
  4. DIOVAN W/ HCTZ [Concomitant]
  5. METFORMIN [Concomitant]
  6. ASPIRIN [Concomitant]
  7. CALCIUM GLUCONATE [Concomitant]

REACTIONS (5)
  - ASTHENIA [None]
  - CHEST DISCOMFORT [None]
  - MUSCULAR WEAKNESS [None]
  - RESPIRATORY TRACT CONGESTION [None]
  - VIRAL INFECTION [None]
